FAERS Safety Report 10076826 (Version 1)
Quarter: 2014Q2

REPORT INFORMATION
  Report Type: Spontaneous
  Country: US (occurrence: None)
  Receive Date: 20140410
  Receipt Date: 20140410
  Transmission Date: 20141212
  Serious: Yes (Death)
  Sender: FDA-Public Use
  Company Number: UTC-046715

PATIENT
  Age: 43 Year
  Sex: Male

DRUGS (6)
  1. TYVASO [Suspect]
     Indication: PULMONARY ARTERIAL HYPERTENSION
     Dosage: 216 MCG (54 MCG, 4 IN 1 D), INHALATION
     Dates: start: 20110314
  2. POTASSIUM [Concomitant]
  3. FUROSEMIDE [Concomitant]
  4. COUMADIN (WARFARIN SODIUM) [Concomitant]
  5. ADCIRCA (TADALAFIL) [Concomitant]
  6. LETAIRIS (AMBRISENTAN) [Concomitant]

REACTIONS (1)
  - Death [None]
